FAERS Safety Report 4865379-5 (Version None)
Quarter: 2005Q4

REPORT INFORMATION
  Report Type: 
  Country: None (occurrence: None)
  Receive Date: 20051223
  Receipt Date: 20051209
  Transmission Date: 20060501
  Serious: Yes (Life-Threatening, Hospitalization)
  Sender: FDA-Public Use
  Company Number: SEWYE236615DEC05

PATIENT
  Sex: Female

DRUGS (4)
  1. ENBREL [Suspect]
     Indication: RHEUMATOID ARTHRITIS
     Route: 058
     Dates: start: 20031201
  2. PREDNISOLONE [Concomitant]
     Indication: ARTHRITIS
     Route: 048
  3. CALCIGRAN [Concomitant]
     Indication: OSTEOPOROSIS PROPHYLAXIS
     Route: 048
  4. METFORMIN [Concomitant]
     Route: 048

REACTIONS (6)
  - ACUTE RESPIRATORY DISTRESS SYNDROME [None]
  - LUPUS-LIKE SYNDROME [None]
  - PERICARDITIS [None]
  - PLEURISY [None]
  - RENAL FAILURE [None]
  - SEPSIS [None]
